FAERS Safety Report 8031553 (Version 7)
Quarter: 2012Q4

REPORT INFORMATION
  Report Type: Report from Study
  Country: JP (occurrence: JP)
  Receive Date: 20110712
  Receipt Date: 20121109
  Transmission Date: 20130627
  Serious: Yes (Hospitalization, Other)
  Sender: FDA-Public Use
  Company Number: JP-JNJFOC-20110701541

PATIENT
  Age: 48 Year
  Sex: Female
  Weight: 65 kg

DRUGS (15)
  1. GOLIMUMAB [Suspect]
     Indication: RHEUMATOID ARTHRITIS
     Route: 058
     Dates: start: 20090121, end: 20110608
  2. PLACEBO [Suspect]
     Indication: RHEUMATOID ARTHRITIS
     Route: 058
     Dates: start: 20080806, end: 20081224
  3. CIMETIDINE [Concomitant]
     Route: 048
     Dates: start: 20021007
  4. FOLIAMIN [Concomitant]
     Route: 048
     Dates: start: 20060215
  5. ISODINE GARGLE [Concomitant]
     Indication: PROPHYLAXIS
     Route: 049
     Dates: start: 20090902
  6. PREDNISOLONE [Concomitant]
     Indication: RHEUMATOID ARTHRITIS
     Route: 048
     Dates: start: 20100415
  7. REBAMIPIDE [Concomitant]
     Route: 048
     Dates: start: 20100707
  8. CRESTOR [Concomitant]
     Indication: HYPERLIPIDAEMIA
     Route: 048
     Dates: start: 20090805
  9. INTEBAN SP [Concomitant]
     Indication: RHEUMATOID ARTHRITIS
     Dates: start: 20100805
  10. TALION [Concomitant]
     Indication: SEASONAL ALLERGY
     Route: 048
     Dates: start: 20110323, end: 20110706
  11. KETOTEN [Concomitant]
     Indication: SEASONAL ALLERGY
     Route: 031
     Dates: start: 20110323, end: 20110706
  12. LEVOCABASTINE HYDROCHLORIDE [Concomitant]
     Indication: SEASONAL ALLERGY
     Route: 045
     Dates: start: 20110323, end: 20110706
  13. INTENURSE [Concomitant]
     Indication: BACK PAIN
     Route: 062
     Dates: start: 20110511
  14. METHOTREXATE [Concomitant]
     Indication: RHEUMATOID ARTHRITIS
     Route: 048
     Dates: start: 20060215
  15. RIMATIL [Concomitant]
     Indication: RHEUMATOID ARTHRITIS
     Route: 048
     Dates: start: 20110706

REACTIONS (1)
  - Uterine cancer [Recovered/Resolved]
